FAERS Safety Report 10249418 (Version 4)
Quarter: 2014Q3

REPORT INFORMATION
  Report Type: Report from Study
  Country: US (occurrence: US)
  Receive Date: 20140620
  Receipt Date: 20140827
  Transmission Date: 20150326
  Serious: Yes (Disabling, Other)
  Sender: FDA-Public Use
  Company Number: US-JNJFOC-20140610851

PATIENT
  Age: 72 Year
  Sex: Female
  Weight: 42.64 kg

DRUGS (3)
  1. REMICADE [Suspect]
     Active Substance: INFLIXIMAB
     Indication: CROHN^S DISEASE
     Dosage: 10 MG [SIC]
     Route: 042
     Dates: start: 200106
  2. ASACOL [Concomitant]
     Active Substance: MESALAMINE
     Route: 048
     Dates: start: 2012
  3. REMICADE [Suspect]
     Active Substance: INFLIXIMAB
     Indication: CROHN^S DISEASE
     Dosage: 10MG [SIC]
     Route: 042
     Dates: start: 20140408

REACTIONS (2)
  - Retinal vein occlusion [Not Recovered/Not Resolved]
  - Blindness unilateral [Not Recovered/Not Resolved]

NARRATIVE: CASE EVENT DATE: 20140515
